FAERS Safety Report 25390864 (Version 1)
Quarter: 2025Q2

REPORT INFORMATION
  Report Type: Spontaneous
  Country: CH (occurrence: CH)
  Receive Date: 20250603
  Receipt Date: 20250603
  Transmission Date: 20250717
  Serious: Yes (Hospitalization)
  Sender: MYLAN
  Company Number: None

PATIENT
  Age: 48 Year
  Sex: Female
  Weight: 86.6 kg

DRUGS (21)
  1. VENLAFAXINE [Interacting]
     Active Substance: VENLAFAXINE HYDROCHLORIDE
     Indication: Product used for unknown indication
     Dosage: 225 MILLIGRAM, QD (225 MG ONCE DAILY (225 MG TAKEN))
     Dates: end: 20250503
  2. VENLAFAXINE [Interacting]
     Active Substance: VENLAFAXINE HYDROCHLORIDE
  3. FLURAZEPAM [Interacting]
     Active Substance: FLURAZEPAM HYDROCHLORIDE
     Indication: Product used for unknown indication
     Dosage: 30 MILLIGRAM, QD (30 MG ONCE DAILY (60 MG TAKEN))
     Dates: end: 20250502
  4. FLURAZEPAM [Interacting]
     Active Substance: FLURAZEPAM HYDROCHLORIDE
     Dates: start: 20250503, end: 20250503
  5. FLURAZEPAM [Interacting]
     Active Substance: FLURAZEPAM HYDROCHLORIDE
  6. QUETIAPINE [Interacting]
     Active Substance: QUETIAPINE
     Indication: Product used for unknown indication
     Dosage: 25 MILLIGRAM, BID (25 MG TWICE DAILY (75 MG TAKEN))
     Dates: end: 20250502
  7. QUETIAPINE [Interacting]
     Active Substance: QUETIAPINE
     Dates: start: 20250503, end: 20250503
  8. PREGABALIN [Interacting]
     Active Substance: PREGABALIN
     Indication: Product used for unknown indication
     Dosage: 100 MILLIGRAM, Q8H (100 MG THREE TIMES DAILY (400 MG TAKEN))
     Dates: end: 20250502
  9. PREGABALIN [Interacting]
     Active Substance: PREGABALIN
     Dates: start: 20250503, end: 20250503
  10. QUETIAPINE FUMARATE [Interacting]
     Active Substance: QUETIAPINE FUMARATE
     Indication: Product used for unknown indication
     Dosage: 300 MILLIGRAM, QD (300 MG ONCE DAILY (600 MG TAKEN))
     Dates: end: 20250502
  11. QUETIAPINE FUMARATE [Interacting]
     Active Substance: QUETIAPINE FUMARATE
     Dates: start: 20250503, end: 20250503
  12. EZETIMIBE [Concomitant]
     Active Substance: EZETIMIBE
     Dosage: 10 MILLIGRAM, QD (10 MG ONCE DAILY (10 MG TAKEN))
  13. METFORMIN HYDROCHLORIDE [Concomitant]
     Active Substance: METFORMIN HYDROCHLORIDE
     Dates: start: 20250503, end: 20250503
  14. METFORMIN HYDROCHLORIDE [Concomitant]
     Active Substance: METFORMIN HYDROCHLORIDE
     Dosage: 1000 MILLIGRAM, BID (1000 MG TWICE DAILY (3 G TAKEN))
  15. ROSUVASTATIN [Concomitant]
     Active Substance: ROSUVASTATIN
     Dates: start: 20250503, end: 20250503
  16. ROSUVASTATIN [Concomitant]
     Active Substance: ROSUVASTATIN
     Dosage: 20 MILLIGRAM, QD (20 MG ONCE DAILY (40 MG TAKEN))
  17. MIDODRINE [Concomitant]
     Active Substance: MIDODRINE
     Dates: start: 20250503, end: 20250503
  18. MIDODRINE [Concomitant]
     Active Substance: MIDODRINE
     Dosage: 2.5 MILLIGRAM, BID (2.5 MG TWICE DAILY (7.5 MG TAKEN))
  19. LEVOTHYROXINE [Concomitant]
     Active Substance: LEVOTHYROXINE
     Dosage: 75 MICROGRAM, 5XW (75 ?G FIVE TIMES WEEKLY (75 ?G TAKEN))
  20. ACETAMINOPHEN [Concomitant]
     Active Substance: ACETAMINOPHEN
  21. ESOMEPRAZOLE [Concomitant]
     Active Substance: ESOMEPRAZOLE
     Dosage: 40 MILLIGRAM, QD (40 MG ONCE DAILY (40 MG TAKEN))
     Dates: end: 20250503

REACTIONS (7)
  - Altered state of consciousness [Recovered/Resolved]
  - Respiratory depression [Recovered/Resolved]
  - Respiratory acidosis [Recovered/Resolved]
  - Electrocardiogram QT prolonged [Recovered/Resolved]
  - Suicide attempt [Recovered/Resolved]
  - Intentional overdose [Recovered/Resolved]
  - Drug interaction [Recovered/Resolved]

NARRATIVE: CASE EVENT DATE: 20250503
